FAERS Safety Report 11137849 (Version 2)
Quarter: 2016Q2

REPORT INFORMATION
  Report Type: Report from Study
  Country: US (occurrence: US)
  Receive Date: 20150526
  Receipt Date: 20160516
  Transmission Date: 20160815
  Serious: No
  Sender: FDA-Public Use
  Company Number: US-MALLINCKRODT-T201500263

PATIENT
  Age: 46 Year
  Sex: Male

DRUGS (2)
  1. REPOSITORY CORTICOTROPIN INJECTION [Suspect]
     Active Substance: CORTICOTROPIN
     Indication: NEPHROTIC SYNDROME
  2. REPOSITORY CORTICOTROPIN INJECTION [Suspect]
     Active Substance: CORTICOTROPIN
     Indication: PROTEINURIA
     Dosage: 1 ML 2X/WEEK
     Route: 030
     Dates: start: 20140909, end: 20150831

REACTIONS (8)
  - Weight increased [Unknown]
  - Blood pressure increased [Unknown]
  - Depressed mood [Unknown]
  - Urinary retention [Unknown]
  - Oedema [Unknown]
  - Mood altered [Unknown]
  - Crying [Unknown]
  - Fluid retention [Not Recovered/Not Resolved]

NARRATIVE: CASE EVENT DATE: 20150831
